FAERS Safety Report 6385850-7 (Version None)
Quarter: 2009Q4

REPORT INFORMATION
  Report Type: 
  Country: None (occurrence: None)
  Receive Date: 20091002
  Receipt Date: 20090928
  Transmission Date: 20100525
  Serious: Yes (Death)
  Sender: FDA-Public Use
  Company Number: FR-ROCHE-656816

PATIENT
  Age: 65 Year
  Sex: Male

DRUGS (6)
  1. ROCEPHIN [Suspect]
     Indication: DRUG USE FOR UNKNOWN INDICATION
     Route: 051
  2. LAROXYL [Suspect]
     Indication: AGITATION
     Dosage: DOSE: 25 MG TABLET, 4 TABLETS DAILY, OTHER INDICATION: ANXIETY
     Route: 048
     Dates: end: 20090721
  3. TERCIAN [Suspect]
     Indication: AGITATION
     Dosage: STRENGTH: 40 MG/ML, OTHER INDICATION: ANXIETY
     Route: 048
     Dates: end: 20090721
  4. STILNOX [Suspect]
     Indication: AGITATION
     Dosage: DOSE: 10 MG TABLET, 1 TABLET ONCE DAILY, OTHER INDICATION: ANXIETY
     Route: 048
     Dates: end: 20090721
  5. ATARAX [Suspect]
     Indication: AGITATION
     Dosage: 25 MG TABLET, 1 TABLET THRICE DAILY, OTHER INDICATION: ANXIETY
     Route: 048
     Dates: end: 20090721
  6. BETAMETHASONE [Suspect]
     Indication: CHRONIC OBSTRUCTIVE PULMONARY DISEASE
     Route: 048
     Dates: end: 20090721

REACTIONS (4)
  - BLOOD CREATINE PHOSPHOKINASE INCREASED [None]
  - CYTOLYTIC HEPATITIS [None]
  - HYPERTHERMIA [None]
  - PROTHROMBIN TIME SHORTENED [None]
